FAERS Safety Report 15170748 (Version 1)
Quarter: 2018Q3

REPORT INFORMATION
  Report Type: Spontaneous
  Country: DK (occurrence: DK)
  Receive Date: 20180720
  Receipt Date: 20180720
  Transmission Date: 20181010
  Serious: Yes (Hospitalization)
  Sender: FDA-Public Use
  Company Number: DK-BAXTER-2018BAX019550

PATIENT
  Age: 45 Year
  Sex: Female

DRUGS (5)
  1. ZOLADEX [Suspect]
     Active Substance: GOSERELIN ACETATE
     Indication: INVASIVE DUCTAL BREAST CARCINOMA
     Route: 058
     Dates: start: 201504
  2. SENDOXAN [Suspect]
     Active Substance: CYCLOPHOSPHAMIDE
     Indication: INVASIVE DUCTAL BREAST CARCINOMA
     Dosage: CHEMOTHERAPY AS PER PROTOCOL B. 15DEC2014 3RD SERIES
     Route: 065
     Dates: start: 201410
  3. DOCETAXEL HOSPIRA [Suspect]
     Active Substance: DOCETAXEL
     Indication: INVASIVE DUCTAL BREAST CARCINOMA
     Dosage: ON 06JAN2015, 27JAN2015 AND 17FEB2015, CHEMOTHERAPY AS PER PROTOCOL B.17FEB2015 6TH SERIES
     Route: 042
     Dates: start: 201501
  4. EPIRUBICIN ACTAVIS [Suspect]
     Active Substance: EPIRUBICIN
     Indication: INVASIVE DUCTAL BREAST CARCINOMA
     Dosage: EPIRUBICIN ON 04NOV2014, 25NOV2014 AND 16DEC2014. CHEMOTHERAPY AS PER PROTOCOL B. JANUARY 2015: STAR
     Route: 042
     Dates: start: 201410, end: 201501
  5. ARIMIDEX [Suspect]
     Active Substance: ANASTROZOLE
     Indication: INVASIVE DUCTAL BREAST CARCINOMA
     Dosage: STRENGTH: 1 MG.
     Route: 048
     Dates: start: 201603

REACTIONS (3)
  - Arthralgia [Not Recovered/Not Resolved]
  - Myalgia [Unknown]
  - Gait disturbance [Not Recovered/Not Resolved]

NARRATIVE: CASE EVENT DATE: 20150111
